FAERS Safety Report 4524080-8 (Version None)
Quarter: 2004Q4

REPORT INFORMATION
  Report Type: 
  Country: None (occurrence: None)
  Receive Date: 20041119
  Receipt Date: 20040813
  Transmission Date: 20050328
  Serious: No
  Sender: FDA-Public Use
  Company Number: PHEH2004US08758

PATIENT
  Age: 54 Year
  Sex: Female

DRUGS (5)
  1. ZELNORM [Suspect]
     Indication: CONSTIPATION
     Dosage: BID, ORAL
     Route: 048
     Dates: start: 20040730
  2. TOPROL-XL [Concomitant]
  3. AMITRIPTYLINE HCL [Concomitant]
  4. ZOCOR [Concomitant]
  5. FOSAMAX [Concomitant]

REACTIONS (3)
  - DRUG INEFFECTIVE [None]
  - INSOMNIA [None]
  - PALPITATIONS [None]
